FAERS Safety Report 17699783 (Version 1)
Quarter: 2020Q2

REPORT INFORMATION
  Report Type: Spontaneous
  Country: US (occurrence: US)
  Receive Date: 20200423
  Receipt Date: 20200423
  Transmission Date: 20200714
  Serious: Yes (Other)
  Sender: FDA-Public Use
  Company Number: US-JNJFOC-20200422276

PATIENT

DRUGS (1)
  1. TYLENOL [Suspect]
     Active Substance: ACETAMINOPHEN
     Indication: PAIN
     Route: 065

REACTIONS (17)
  - Fatigue [Unknown]
  - Nausea [Unknown]
  - Pruritus [Unknown]
  - Palpitations [Unknown]
  - Dizziness [Unknown]
  - Dysuria [Unknown]
  - Mental impairment [Unknown]
  - Hallucination [Unknown]
  - Constipation [Unknown]
  - Diarrhoea [Unknown]
  - Peripheral swelling [Unknown]
  - Somnolence [Unknown]
  - Dyspnoea [Unknown]
  - Adverse event [Unknown]
  - Vomiting [Unknown]
  - Confusional state [Unknown]
  - Abdominal discomfort [Unknown]
